FAERS Safety Report 15931266 (Version 1)
Quarter: 2019Q1

REPORT INFORMATION
  Report Type: Spontaneous
  Country: PT (occurrence: PT)
  Receive Date: 20190207
  Receipt Date: 20190207
  Transmission Date: 20190417
  Serious: Yes (Other)
  Sender: FDA-Public Use
  Company Number: PT-GUERBET-PT-20190004

PATIENT
  Age: 86 Year
  Weight: 85 kg

DRUGS (1)
  1. OPTIRAY 350 [Suspect]
     Active Substance: IOVERSOL
     Indication: CATHETERISATION CARDIAC
     Route: 013
     Dates: start: 20190111, end: 20190111

REACTIONS (2)
  - Rash macular [Recovered/Resolved]
  - Contrast media reaction [Recovered/Resolved]

NARRATIVE: CASE EVENT DATE: 20190111
